FAERS Safety Report 14320221 (Version 2)
Quarter: 2018Q1

REPORT INFORMATION
  Report Type: Spontaneous
  Country: ZA (occurrence: ZA)
  Receive Date: 20171222
  Receipt Date: 20180103
  Transmission Date: 20180509
  Serious: Yes (Death, Other)
  Sender: FDA-Public Use
  Company Number: ZA-009507513-1712ZAF008694

PATIENT
  Age: 71 Year
  Sex: Male

DRUGS (21)
  1. TRAMACET [Suspect]
     Active Substance: ACETAMINOPHEN\TRAMADOL
     Dosage: UNK
  2. CORDARONE [Suspect]
     Active Substance: AMIODARONE HYDROCHLORIDE
     Dosage: UNK
  3. DOXYLAMINE SUCCINATE. [Suspect]
     Active Substance: DOXYLAMINE SUCCINATE
     Dosage: UNK
  4. PROCYDIN [Suspect]
     Active Substance: CYPROHEPTADINE HYDROCHLORIDE
     Dosage: UNK
  5. CAFFEINE. [Suspect]
     Active Substance: CAFFEINE
     Dosage: UNK
  6. CARLOC [Suspect]
     Active Substance: CARVEDILOL
     Dosage: UNK
  7. GLICLAZIDE [Suspect]
     Active Substance: GLICLAZIDE
     Dosage: UNK
  8. LENAPAIN [Suspect]
     Active Substance: ACETAMINOPHEN\CAFFEINE\CODEINE\DOXYLAMINE
     Dosage: OCCASIONALLY
  9. FOLIC ACID. [Suspect]
     Active Substance: FOLIC ACID
     Dosage: UNK
  10. GLUCOPHAGE [Suspect]
     Active Substance: METFORMIN HYDROCHLORIDE
     Dosage: UNK
  11. TOPZOLE [Suspect]
     Active Substance: PANTOPRAZOLE SODIUM
     Dosage: UNK
  12. FORTZAAR [Suspect]
     Active Substance: HYDROCHLOROTHIAZIDE\LOSARTAN POTASSIUM
     Dosage: UNK
     Route: 048
  13. CODEINE PHOSPHATE [Suspect]
     Active Substance: CODEINE PHOSPHATE
     Dosage: UNK
  14. DORMONOCT [Suspect]
     Active Substance: LOPRAZOLAM
     Dosage: UNK
  15. BAYER ASPIRIN CARDIO [Suspect]
     Active Substance: ASPIRIN
     Dosage: UNK
  16. CLOPAMON [Suspect]
     Active Substance: METOCLOPRAMIDE
     Dosage: UNK
  17. LASIX [Suspect]
     Active Substance: FUROSEMIDE
     Dosage: UNK
  18. WARFARIN [Suspect]
     Active Substance: WARFARIN
     Dosage: UNK
  19. ASPAVOR [Suspect]
     Active Substance: ATORVASTATIN
     Dosage: UNK
  20. ANTISTAX [Suspect]
     Active Substance: VITIS VINIFERA FLOWERING TOP
     Dosage: OCCASIONALLY
  21. HYDROCHLOROTHIAZIDE. [Suspect]
     Active Substance: HYDROCHLOROTHIAZIDE
     Dosage: UNK

REACTIONS (1)
  - Death [Fatal]

NARRATIVE: CASE EVENT DATE: 2017
